FAERS Safety Report 6420382-9 (Version None)
Quarter: 2009Q4

REPORT INFORMATION
  Report Type: 
  Country: None (occurrence: None)
  Receive Date: 20091029
  Receipt Date: 20091016
  Transmission Date: 20100525
  Serious: Yes (Other)
  Sender: FDA-Public Use
  Company Number: US-ELI_LILLY_AND_COMPANY-US200910004235

PATIENT
  Sex: Female

DRUGS (3)
  1. CYMBALTA [Suspect]
     Indication: FIBROMYALGIA
     Dosage: 60 MG, DAILY (1/D)
  2. CIPRO [Concomitant]
     Dosage: 1 D/F, UNK
  3. CLARINEX [Concomitant]
     Dosage: 1 D/F, UNK

REACTIONS (12)
  - ABNORMAL BEHAVIOUR [None]
  - ARTHRITIS [None]
  - DRUG HYPERSENSITIVITY [None]
  - FIBROMYALGIA [None]
  - NEUROPATHY PERIPHERAL [None]
  - ORAL MUCOSAL EXFOLIATION [None]
  - RASH [None]
  - SINUSITIS [None]
  - SOMNOLENCE [None]
  - STRESS [None]
  - SWELLING FACE [None]
  - UPPER RESPIRATORY TRACT INFECTION [None]
